FAERS Safety Report 9535464 (Version 2)
Quarter: 2014Q1

REPORT INFORMATION
  Report Type: Spontaneous
  Country: GB (occurrence: GB)
  Receive Date: 20130918
  Receipt Date: 20140128
  Transmission Date: 20141002
  Serious: Yes (Hospitalization)
  Sender: FDA-Public Use
  Company Number: GB-WATSON-2013-16100

PATIENT
  Age: 65 Year
  Sex: Female
  Weight: 60 kg

DRUGS (12)
  1. DOXORUBICIN (UNKNOWN) [Suspect]
     Indication: PLASMA CELL MYELOMA
     Dosage: TREATED ON DAYS 1-4;14MG, 4/28DAYS
     Route: 042
     Dates: start: 20130319
  2. DEXAMETHASONE (UNKNOWN) [Suspect]
     Indication: PLASMA CELL MYELOMA
     Dosage: 10 MG, TREATED ON WEEK 1, 2 AND 3; 3/4 WEEKS
     Route: 048
     Dates: start: 20130319, end: 20130407
  3. VELCADE [Suspect]
     Indication: PLASMA CELL MYELOMA
     Dosage: 1.3 MG/M2, 4/28DAYS TREATED ON DAYS 1,4,8,11
     Route: 058
     Dates: start: 20130319, end: 20130506
  4. BACTRIM [Concomitant]
     Indication: PROPHYLAXIS
     Dosage: 480 MG, DAILY
     Route: 048
  5. MAXOLON [Concomitant]
     Indication: PROPHYLAXIS OF NAUSEA AND VOMITING
     Dosage: 30 MG, TID
     Route: 048
  6. LANSOPRAZOLE [Concomitant]
     Indication: ANTACID THERAPY
     Dosage: 30 MG, DAILY
     Route: 048
  7. VENTOLIN [Concomitant]
     Indication: CHRONIC OBSTRUCTIVE PULMONARY DISEASE
     Dosage: UNK, 4 TIMES A DAY
     Route: 055
  8. CITALOPRAM [Concomitant]
     Indication: DEPRESSION
     Route: 048
  9. ACICLOVIR [Concomitant]
     Indication: PROPHYLAXIS
     Dosage: 800 MG, BID
     Route: 048
  10. ALLOPURINOL [Concomitant]
     Indication: PROPHYLAXIS
     Dosage: 300 MG, DAILY
     Route: 048
  11. DIAZEPAM [Concomitant]
     Indication: DEPRESSION
     Dosage: 3 MG, TID
     Route: 048
  12. FLUCONAZOLE [Concomitant]
     Indication: PROPHYLAXIS
     Dosage: 50 MG, DAILY
     Route: 048

REACTIONS (4)
  - Pneumonia [Recovered/Resolved]
  - Dyspnoea [Recovered/Resolved]
  - Pyrexia [Recovered/Resolved]
  - Productive cough [Recovered/Resolved]
